FAERS Safety Report 18766145 (Version 2)
Quarter: 2021Q1

REPORT INFORMATION
  Report Type: Spontaneous
  Country: CA (occurrence: CA)
  Receive Date: 20210120
  Receipt Date: 20210317
  Transmission Date: 20210419
  Serious: Yes (Other)
  Sender: FDA-Public Use
  Company Number: CA-CELLTRION INC.-2020CA034984

PATIENT

DRUGS (5)
  1. INFLECTRA [Suspect]
     Active Substance: INFLIXIMAB-DYYB
     Dosage: 5 MG/KG (Q 2, 6 WEEKS, THEN EVERY 8 WEEKS)
     Route: 042
     Dates: start: 20201030
  2. PREDNISONE. [Concomitant]
     Active Substance: PREDNISONE
     Dosage: 40 MG, 1X/DAY (5 MG X 8 TABLETS)
     Route: 065
     Dates: start: 202012
  3. PREDNISONE. [Concomitant]
     Active Substance: PREDNISONE
     Dosage: TAPER BY ONE TABLET EVERY WEEK
  4. INFLECTRA [Suspect]
     Active Substance: INFLIXIMAB-DYYB
     Indication: CROHN^S DISEASE
     Dosage: 5 MG/KG (Q 2, 6 WEEKS, THEN EVERY 8 WEEKS)
     Route: 042
     Dates: start: 20200922
  5. INFLECTRA [Suspect]
     Active Substance: INFLIXIMAB-DYYB
     Dosage: 5 MG/KG (Q 2, 6 WEEKS, THEN EVERY 8 WEEKS)
     Route: 042
     Dates: start: 20210112

REACTIONS (2)
  - Crohn^s disease [Unknown]
  - Pyrexia [Recovered/Resolved]

NARRATIVE: CASE EVENT DATE: 20201209
